FAERS Safety Report 20860162 (Version 1)
Quarter: 2022Q2

REPORT INFORMATION
  Report Type: Spontaneous
  Country: US (occurrence: None)
  Receive Date: 20220520
  Receipt Date: 20220520
  Transmission Date: 20220721
  Serious: No
  Sender: FDA-Public Use
  Company Number: None

PATIENT
  Sex: Male

DRUGS (1)
  1. HUMIRA [Suspect]
     Active Substance: ADALIMUMAB
     Indication: Polyarthritis
     Dosage: 40MG EVERY 7 DAYS SUBCUTANEOUS?
     Route: 058
     Dates: start: 20210907

REACTIONS (6)
  - Arthralgia [None]
  - Stress [None]
  - Joint swelling [None]
  - Peripheral swelling [None]
  - Pain [None]
  - Loss of personal independence in daily activities [None]
